FAERS Safety Report 4577644-X (Version None)
Quarter: 2005Q1

REPORT INFORMATION
  Report Type: 
  Country: None (occurrence: None)
  Receive Date: 20050208
  Receipt Date: 20050125
  Transmission Date: 20050727
  Serious: Yes (Hospitalization)
  Sender: FDA-Public Use
  Company Number: MK200501-0251-1

PATIENT
  Age: 40 Year
  Sex: Male

DRUGS (1)
  1. OPT.300 [Suspect]
     Indication: UROGRAPHY
     Dosage: 50 ML, SINGLE USE
     Route: 042
     Dates: start: 20050112, end: 20050112

REACTIONS (2)
  - CARDIO-RESPIRATORY ARREST [None]
  - LARYNGEAL OEDEMA [None]
